FAERS Safety Report 6221711-1 (Version None)
Quarter: 2009Q2

REPORT INFORMATION
  Report Type: 
  Country: None (occurrence: None)
  Receive Date: 20090608
  Receipt Date: 20090602
  Transmission Date: 20091009
  Serious: Yes (Death, Hospitalization)
  Sender: FDA-Public Use
  Company Number: 2009AL003647

PATIENT
  Age: 23 Year
  Sex: Female

DRUGS (1)
  1. FEVERALL [Suspect]
     Indication: OVERDOSE
     Dosage: 50 G;

REACTIONS (10)
  - ACUTE HEPATIC FAILURE [None]
  - CARDIOTOXICITY [None]
  - DRUG TOXICITY [None]
  - GENERAL PHYSICAL HEALTH DETERIORATION [None]
  - LIVER TRANSPLANT [None]
  - MYOCARDIAL HAEMORRHAGE [None]
  - MYOCARDIAL INFARCTION [None]
  - MYOCARDIAL ISCHAEMIA [None]
  - OVERDOSE [None]
  - VENTRICULAR HYPERTROPHY [None]
